FAERS Safety Report 22633166 (Version 2)
Quarter: 2023Q2

REPORT INFORMATION
  Report Type: Spontaneous
  Country: US (occurrence: US)
  Receive Date: 20230623
  Receipt Date: 20230627
  Transmission Date: 20230721
  Serious: No
  Sender: FDA-Public Use
  Company Number: US-AMGEN-USASP2023109057

PATIENT
  Sex: Female

DRUGS (1)
  1. REPATHA [Suspect]
     Active Substance: EVOLOCUMAB
     Indication: Low density lipoprotein abnormal
     Dosage: UNK, Q2WK
     Route: 065

REACTIONS (5)
  - Incorrect dose administered by device [Unknown]
  - Low density lipoprotein abnormal [Unknown]
  - Myalgia [Unknown]
  - Blood creatine phosphokinase abnormal [Unknown]
  - Off label use [Unknown]
